FAERS Safety Report 6302795-9 (Version None)
Quarter: 2009Q3

REPORT INFORMATION
  Report Type: 
  Country: None (occurrence: None)
  Receive Date: 20090810
  Receipt Date: 20090501
  Transmission Date: 20100115
  Serious: No
  Sender: FDA-Public Use
  Company Number: A0781651A

PATIENT
  Age: 73 Year
  Sex: Female

DRUGS (6)
  1. ALTABAX [Suspect]
     Indication: EPIDERMOLYSIS
     Dosage: 1APP PER DAY
     Route: 061
     Dates: start: 20090430
  2. COREG [Concomitant]
  3. COZAAR [Concomitant]
  4. LEVOXYL [Concomitant]
  5. ELAVIL [Concomitant]
  6. XANAX [Concomitant]

REACTIONS (1)
  - PAIN IN EXTREMITY [None]
